FAERS Safety Report 6410727-8 (Version None)
Quarter: 2009Q4

REPORT INFORMATION
  Report Type: 
  Country: None (occurrence: None)
  Receive Date: 20091022
  Receipt Date: 20091008
  Transmission Date: 20100525
  Serious: Yes (Other)
  Sender: FDA-Public Use
  Company Number: DE-MYLANLABS-2009S1017723

PATIENT
  Age: 59 Year
  Sex: Male
  Weight: 83 kg

DRUGS (1)
  1. LAMOTRIGINE [Suspect]
     Indication: EPILEPSY
     Dosage: 50 MG 1-0-1
     Route: 048
     Dates: start: 20090601, end: 20091001

REACTIONS (4)
  - DRUG INTERACTION [None]
  - HYPERKALAEMIA [None]
  - HYPONATRAEMIA [None]
  - POST PROCEDURAL HAEMORRHAGE [None]
